FAERS Safety Report 4996013-1 (Version None)
Quarter: 2006Q2

REPORT INFORMATION
  Report Type: 
  Country: None (occurrence: None)
  Receive Date: 20060504
  Receipt Date: 20060421
  Transmission Date: 20061013
  Serious: Yes (Life-Threatening, Disabling)
  Sender: FDA-Public Use
  Company Number: 2006-04-0962

PATIENT
  Age: 49 Year
  Sex: Female
  Weight: 78 kg

DRUGS (1)
  1. CLARITIN [Suspect]
     Dosage: 10 MG ORAL
     Route: 048
     Dates: start: 20020906, end: 20050811

REACTIONS (10)
  - BLOOD IRON DECREASED [None]
  - DECREASED INTEREST [None]
  - DEPRESSED MOOD [None]
  - DEPRESSION [None]
  - FATIGUE [None]
  - HYPERSOMNIA [None]
  - MEAN CELL VOLUME INCREASED [None]
  - PLATELET COUNT ABNORMAL [None]
  - RED BLOOD CELL COUNT ABNORMAL [None]
  - RED BLOOD CELL SEDIMENTATION RATE INCREASED [None]
